FAERS Safety Report 7638382-X (Version None)
Quarter: 2011Q3

REPORT INFORMATION
  Report Type: 
  Country: None (occurrence: None)
  Receive Date: 20110720
  Receipt Date: 20110704
  Transmission Date: 20111222
  Serious: Yes (Other)
  Sender: FDA-Public Use
  Company Number: AUR-APL-2011-01733

PATIENT
  Age: 40 Year
  Sex: Female
  Weight: 54.4 kg

DRUGS (4)
  1. LEVONORGESTREL + ETHINYL ESTRADIOL [Suspect]
     Indication: OFF LABEL USE
     Dosage: 0.3 MG (0.3 MG , 1 IN 1 DAY) UNKNOWN
     Dates: start: 20110301
  2. TOPIRAMATE [Suspect]
     Indication: EPILEPSY
     Dosage: 200 MG (100 MG , 2 IN 1  DAY, UNKNOWN
     Dates: start: 19960101
  3. KEPPRA [Suspect]
     Indication: EPILEPSY
     Dosage: 2000 MG (1000 MG , 2 IN 1 DAY
     Dates: start: 20050101
  4. CITALOPRAM (CITALOPRAM) [Concomitant]

REACTIONS (8)
  - VAGINAL DISCHARGE [None]
  - CONFUSIONAL STATE [None]
  - PETIT MAL EPILEPSY [None]
  - FEELING HOT [None]
  - MEMORY IMPAIRMENT [None]
  - LOSS OF CONSCIOUSNESS [None]
  - DIZZINESS [None]
  - DEJA VU [None]
